FAERS Safety Report 9867639 (Version 1)
Quarter: 2014Q1

REPORT INFORMATION
  Report Type: Spontaneous
  Country: US (occurrence: US)
  Receive Date: 20140204
  Receipt Date: 20140204
  Transmission Date: 20141002
  Serious: Yes (Hospitalization)
  Sender: FDA-Public Use
  Company Number: US-B.I. PHARMACEUTICALS,INC./RIDGEFIELD-2014-BI-03786BP

PATIENT
  Age: 65 Year
  Sex: Female

DRUGS (4)
  1. COMBIVENT [Suspect]
     Indication: CHRONIC OBSTRUCTIVE PULMONARY DISEASE
     Dosage: STRENGTH: 20 MCG / 100 MCG; DAILY DOSE: 80 MCG/ 400 MCG
     Route: 055
     Dates: start: 201306
  2. COREG [Concomitant]
     Indication: HYPERTENSION
     Route: 048
  3. CLONAZEPAM [Concomitant]
     Route: 048
  4. PREDNISONE [Concomitant]
     Route: 048

REACTIONS (2)
  - Dyspnoea [Recovered/Resolved]
  - Pneumonia [Not Recovered/Not Resolved]
